FAERS Safety Report 5245074-3 (Version None)
Quarter: 2007Q1

REPORT INFORMATION
  Report Type: 
  Country: None (occurrence: None)
  Receive Date: 20070223
  Receipt Date: 20061113
  Transmission Date: 20070707
  Serious: Yes (Other)
  Sender: FDA-Public Use
  Company Number: US-JNJFOC-20060307890

PATIENT
  Sex: Male
  Weight: 107.05 kg

DRUGS (8)
  1. RISPERDAL [Suspect]
  2. RISPERDAL [Suspect]
     Indication: DEPRESSION
  3. ZYPREXA [Suspect]
     Indication: DRUG USE FOR UNKNOWN INDICATION
  4. ZOLOFT [Concomitant]
  5. ACCUPRIL [Concomitant]
  6. MICROZIDE [Concomitant]
  7. ATENOLOL [Concomitant]
  8. HYDROCHLOROTHIAZIDE [Concomitant]

REACTIONS (2)
  - DIABETES MELLITUS NON-INSULIN-DEPENDENT [None]
  - IRON DEFICIENCY ANAEMIA [None]
